FAERS Safety Report 5815733-X (Version None)
Quarter: 2008Q3

REPORT INFORMATION
  Report Type: 
  Country: None (occurrence: None)
  Receive Date: 20080721
  Receipt Date: 20080708
  Transmission Date: 20090109
  Serious: Yes (Other)
  Sender: FDA-Public Use
  Company Number: US-BAYER-200812771BCC

PATIENT
  Age: 73 Year
  Sex: Male
  Weight: 112 kg

DRUGS (9)
  1. ALEVE (CAPLET) [Suspect]
     Indication: ARTHRITIS
     Dosage: TOTAL DAILY DOSE: 220 MG  UNIT DOSE: 220 MG
  2. ASPIRIN [Suspect]
     Dosage: TOTAL DAILY DOSE: 81 MG  UNIT DOSE: 81 MG
  3. LORAZEPAM [Concomitant]
  4. CITALOPRAM HYDROBROMIDE [Concomitant]
  5. SIMESTATIN [Concomitant]
  6. CALTRATE [Concomitant]
  7. MAGNESIUM [Concomitant]
  8. OSTEO BI-FLEX [Concomitant]
  9. SLEEP AID [Concomitant]

REACTIONS (2)
  - BLOOD URINE PRESENT [None]
  - HAEMORRHAGE URINARY TRACT [None]
